FAERS Safety Report 23052197 (Version 1)
Quarter: 2023Q4

REPORT INFORMATION
  Report Type: Spontaneous
  Country: US (occurrence: US)
  Receive Date: 20231010
  Receipt Date: 20231010
  Transmission Date: 20240109
  Serious: No
  Sender: FDA-Public Use
  Company Number: US-PRINSTON PHARMACEUTICAL INC.-2022PRN00353

PATIENT
  Age: 46 Year
  Sex: Female
  Weight: 59.864 kg

DRUGS (1)
  1. ESCITALOPRAM [Suspect]
     Active Substance: ESCITALOPRAM OXALATE
     Indication: Anxiety
     Dosage: 10 MG, 1X/DAY
     Dates: start: 202207, end: 20220927

REACTIONS (3)
  - Coeliac disease [Not Recovered/Not Resolved]
  - Alopecia [Not Recovered/Not Resolved]
  - Product substitution issue [Recovered/Resolved]

NARRATIVE: CASE EVENT DATE: 20220701
